FAERS Safety Report 7461232-1 (Version None)
Quarter: 2011Q2

REPORT INFORMATION
  Report Type: 
  Country: None (occurrence: None)
  Receive Date: 20110506
  Receipt Date: 20110426
  Transmission Date: 20111010
  Serious: Yes (Hospitalization, Other)
  Sender: FDA-Public Use
  Company Number: TR-PAR PHARMACEUTICAL, INC-2011SCPR002933

PATIENT
  Age: 61 Year
  Sex: Female

DRUGS (12)
  1. CLOZAPINE [Suspect]
     Indication: TARDIVE DYSKINESIA
     Dosage: 100 MG, QD
     Route: 065
  2. ESCITALOPRAM [Suspect]
     Indication: MAJOR DEPRESSION
     Dosage: 20 MG, PER DAY
     Route: 065
  3. OLANZAPINE [Suspect]
     Indication: MAJOR DEPRESSION
     Dosage: 20 MG/D
     Route: 065
  4. REBOXETINE [Suspect]
     Indication: MAJOR DEPRESSION
     Dosage: 8 MG, UNKNOWN
     Route: 065
  5. LAMOTRIGINE [Suspect]
     Indication: MAJOR DEPRESSION
     Dosage: 500 MG, UNKNOWN
     Route: 065
  6. VENLAFAXINE [Suspect]
     Indication: MAJOR DEPRESSION
     Dosage: 300 MG/D
     Route: 065
  7. ALPRAZOLAM [Suspect]
     Indication: MAJOR DEPRESSION
     Dosage: 1 MG, UNKNOWN
     Route: 065
  8. PAROXETINE HCL [Suspect]
     Indication: MAJOR DEPRESSION
     Dosage: UNK, UNKNOWN
     Route: 065
  9. SULPIRIDE [Suspect]
     Indication: MAJOR DEPRESSION
     Dosage: 200 MG, UNKNOWN
     Route: 065
  10. RISPERIDONE [Suspect]
     Indication: MAJOR DEPRESSION
     Dosage: 2 MG, QD
     Route: 065
  11. TIANEPTINE [Suspect]
     Indication: MAJOR DEPRESSION
     Dosage: 12.5 MG, UNKNOWN
     Route: 065
  12. MIRTAZEPINE TEVA [Suspect]
     Indication: MAJOR DEPRESSION
     Dosage: 15 G, UNKNOWN
     Route: 065

REACTIONS (1)
  - TARDIVE DYSKINESIA [None]
